FAERS Safety Report 6143988-3 (Version None)
Quarter: 2009Q2

REPORT INFORMATION
  Report Type: 
  Country: None (occurrence: None)
  Receive Date: 20090406
  Receipt Date: 20090331
  Transmission Date: 20091009
  Serious: Yes (Other)
  Sender: FDA-Public Use
  Company Number: US-JNJFOC-20090400580

PATIENT
  Sex: Female
  Weight: 104.33 kg

DRUGS (9)
  1. DURAGESIC-100 [Suspect]
     Indication: HEADACHE
     Route: 062
  2. VERAPAMIL [Concomitant]
     Indication: HYPERTENSION
     Route: 048
  3. BACLOFEN [Concomitant]
     Indication: MUSCLE SPASMS
     Route: 048
  4. METHADONE [Concomitant]
     Indication: BREAKTHROUGH PAIN
     Route: 048
  5. VISTARIL [Concomitant]
     Indication: NAUSEA
     Dosage: AS NEEDED
     Route: 048
  6. LASIX [Concomitant]
     Indication: OEDEMA
     Route: 048
  7. ZAROXOLYN [Concomitant]
     Indication: OEDEMA
     Route: 048
  8. THEOPHYLLINE [Concomitant]
     Indication: ASTHMA
     Dosage: SINCE 1980'S
     Route: 048
  9. PROAIR HFA [Concomitant]
     Indication: ASTHMA
     Dosage: SINCE 1980'S
     Route: 055

REACTIONS (3)
  - CARDIAC FAILURE CONGESTIVE [None]
  - CHEST PAIN [None]
  - INADEQUATE ANALGESIA [None]
